FAERS Safety Report 5721733 (Version 4)
Quarter: 2012Q4

REPORT INFORMATION
  Report Type: 
  Country: US (occurrence: US)
  Receive Date: 20050103
  Receipt Date: 20120921
  Transmission Date: 20130627
  Serious: No
  Sender: FDA-Public Use
  Company Number: US-ASTRAZENECA-2004UW21305

PATIENT
  Age: 38 Year
  Sex: Female
  Weight: 66.2 kg

DRUGS (6)
  1. CRESTOR [Suspect]
     Indication: BLOOD CHOLESTEROL INCREASED
     Route: 048
     Dates: start: 20040923
  2. ALEVE [Concomitant]
  3. KLONOPIN [Concomitant]
  4. BABY ASPIRIN [Concomitant]
  5. POTASSIUM CITRATE [Concomitant]
  6. TRILEPTAL [Concomitant]

REACTIONS (7)
  - Faeces discoloured [Unknown]
  - Back pain [Unknown]
  - Hepatic mass [Unknown]
  - Pancreatic neoplasm [Unknown]
  - Constipation [Unknown]
  - Abdominal pain [Unknown]
  - Blood cholesterol decreased [Unknown]
